FAERS Safety Report 7278825-7 (Version None)
Quarter: 2011Q1

REPORT INFORMATION
  Report Type: 
  Country: None (occurrence: None)
  Receive Date: 20110207
  Receipt Date: 20110203
  Transmission Date: 20110831
  Serious: Yes (Death, Other)
  Sender: FDA-Public Use
  Company Number: DE-ABBOTT-11P-062-0698121-00

PATIENT
  Sex: Male
  Weight: 132 kg

DRUGS (14)
  1. FOLSAN [Concomitant]
     Indication: PRODUCT USED FOR UNKNOWN INDICATION
  2. CALCIMAGON-D3 [Concomitant]
     Indication: PRODUCT USED FOR UNKNOWN INDICATION
  3. MTX [Concomitant]
     Indication: PRODUCT USED FOR UNKNOWN INDICATION
  4. PREDNISOLONE [Concomitant]
     Dates: end: 20100214
  5. HUMIRA [Suspect]
     Indication: RHEUMATOID ARTHRITIS
     Route: 050
     Dates: start: 20100210, end: 20101222
  6. PREDNISOLONE [Concomitant]
     Indication: PRODUCT USED FOR UNKNOWN INDICATION
  7. ALLOPURINOL [Concomitant]
     Indication: PRODUCT USED FOR UNKNOWN INDICATION
  8. ATACAND HCT [Concomitant]
     Indication: PRODUCT USED FOR UNKNOWN INDICATION
     Dosage: 16/12.5 DAILY
  9. CALCIVIT D [Concomitant]
     Indication: PRODUCT USED FOR UNKNOWN INDICATION
  10. ARCOXIA [Concomitant]
     Indication: PRODUCT USED FOR UNKNOWN INDICATION
  11. FOLCUR [Concomitant]
     Indication: PRODUCT USED FOR UNKNOWN INDICATION
     Dosage: 3 TABS MONDAY EVENINGS
  12. METEX [Concomitant]
     Indication: PRODUCT USED FOR UNKNOWN INDICATION
     Route: 058
  13. TRIAMCINOLONHEXACETONID [Concomitant]
     Indication: ARTHROPATHY
     Route: 050
  14. TRIAMCINOLONHEXACETONID [Concomitant]

REACTIONS (7)
  - TUBERCULOSIS [None]
  - MULTIMORBIDITY [None]
  - MELAENA [None]
  - SEPSIS [None]
  - ULCER [None]
  - MECHANICAL ILEUS [None]
  - HERNIA OBSTRUCTIVE [None]
